FAERS Safety Report 9002230 (Version 2)
Quarter: 2013Q1

REPORT INFORMATION
  Report Type: Spontaneous
  Country: US (occurrence: US)
  Receive Date: 20130107
  Receipt Date: 20130205
  Transmission Date: 20140127
  Serious: No
  Sender: FDA-Public Use
  Company Number: US-ASTELLAS-2013US000177

PATIENT
  Sex: Female

DRUGS (2)
  1. PROGRAF [Suspect]
     Indication: LUNG TRANSPLANT
     Dosage: 0.5 MG, BID
     Route: 048
  2. PROGRAF [Suspect]
     Indication: HEART TRANSPLANT
     Dosage: 8 MG, UID/QD
     Route: 048

REACTIONS (1)
  - Off label use [Unknown]
